FAERS Safety Report 20983958 (Version 1)
Quarter: 2022Q2

REPORT INFORMATION
  Report Type: Spontaneous
  Country: US (occurrence: US)
  Receive Date: 20220621
  Receipt Date: 20220621
  Transmission Date: 20220721
  Serious: Yes (Other)
  Sender: FDA-Public Use
  Company Number: US-AMGEN-USASP2022103316

PATIENT
  Age: 73 Year
  Sex: Female

DRUGS (2)
  1. PROLIA [Suspect]
     Active Substance: DENOSUMAB
     Indication: Osteoporosis postmenopausal
     Dosage: 60 MILLIGRAM
     Route: 065
  2. COVID-19 vaccine [Concomitant]
     Dosage: UNK

REACTIONS (5)
  - Osteogenesis imperfecta [Unknown]
  - Rib fracture [Unknown]
  - Spinal fracture [Unknown]
  - Lumbar vertebral fracture [Unknown]
  - Fall [Unknown]

NARRATIVE: CASE EVENT DATE: 20220614
